FAERS Safety Report 11863300 (Version 1)
Quarter: 2015Q4

REPORT INFORMATION
  Report Type: Report from Study
  Country: ID (occurrence: ID)
  Receive Date: 20151223
  Receipt Date: 20151223
  Transmission Date: 20160305
  Serious: Yes (Other)
  Sender: FDA-Public Use
  Company Number: ID-ROCHE-1680117

PATIENT
  Age: 44 Year
  Sex: Female

DRUGS (1)
  1. HERCEPTIN [Suspect]
     Active Substance: TRASTUZUMAB
     Indication: BREAST CANCER METASTATIC
     Route: 065
     Dates: start: 20140215

REACTIONS (5)
  - Musculoskeletal stiffness [Unknown]
  - Swelling [Unknown]
  - Pain [Unknown]
  - Sepsis [Unknown]
  - Diarrhoea [Unknown]
